FAERS Safety Report 7973206 (Version 4)
Quarter: 2013Q4

REPORT INFORMATION
  Report Type: Spontaneous
  Country: US (occurrence: US)
  Receive Date: 20110603
  Receipt Date: 20131024
  Transmission Date: 20140711
  Serious: Yes (Other)
  Sender: FDA-Public Use
  Company Number: US-JNJFOC-20100805613

PATIENT
  Age: 45 Year
  Sex: Female

DRUGS (1)
  1. LEVAQUIN [Suspect]
     Indication: PRODUCT USED FOR UNKNOWN INDICATION
     Route: 048
     Dates: start: 20060401, end: 20060531

REACTIONS (4)
  - Rotator cuff syndrome [Unknown]
  - Epicondylitis [Not Recovered/Not Resolved]
  - Musculoskeletal pain [Unknown]
  - Tendonitis [Unknown]
